FAERS Safety Report 17407997 (Version 5)
Quarter: 2020Q2

REPORT INFORMATION
  Report Type: Spontaneous
  Country: US (occurrence: US)
  Receive Date: 20200212
  Receipt Date: 20200626
  Transmission Date: 20200713
  Serious: No
  Sender: FDA-Public Use
  Company Number: US-PFIZER INC-2020060186

PATIENT
  Age: 78 Year
  Sex: Female

DRUGS (3)
  1. SOMAVERT [Suspect]
     Active Substance: PEGVISOMANT
     Dosage: 15 MG, DAILY
     Route: 058
     Dates: start: 202003
  2. SOMAVERT [Suspect]
     Active Substance: PEGVISOMANT
     Dosage: 15 MG, DAILY [15MG 5 DAYS PER WEEK, PT TAKING DAILY]
     Route: 058
     Dates: start: 20200204
  3. SOMAVERT [Suspect]
     Active Substance: PEGVISOMANT
     Indication: ACROMEGALY
     Dosage: 15 MG, ALTERNATE DAY [15MG EVERY OTHER DAY]
     Route: 058
     Dates: start: 2000

REACTIONS (4)
  - Product dose omission [Unknown]
  - Intentional dose omission [Unknown]
  - Laziness [Unknown]
  - Insulin-like growth factor increased [Recovering/Resolving]

NARRATIVE: CASE EVENT DATE: 2020
